FAERS Safety Report 6674362-9 (Version None)
Quarter: 2010Q2

REPORT INFORMATION
  Report Type: 
  Country: None (occurrence: None)
  Receive Date: 20100409
  Receipt Date: 20100406
  Transmission Date: 20101027
  Serious: Yes (Other)
  Sender: FDA-Public Use
  Company Number: JP-JNJFOC-20100307565

PATIENT
  Age: 66 Year
  Sex: Male
  Weight: 52 kg

DRUGS (10)
  1. DUROTEP [Suspect]
     Indication: CANCER PAIN
     Route: 062
  2. DUROTEP [Suspect]
     Route: 062
  3. DUROTEP [Suspect]
     Route: 062
  4. DUROTEP [Suspect]
     Route: 062
  5. DUROTEP [Suspect]
     Route: 062
  6. FENTANYL CITRATE [Suspect]
     Indication: CANCER PAIN
     Route: 042
  7. FENTANYL CITRATE [Suspect]
     Route: 042
  8. FENTANYL CITRATE [Suspect]
     Route: 042
  9. FENTANYL CITRATE [Suspect]
     Route: 042
  10. FENTANYL CITRATE [Suspect]
     Route: 042

REACTIONS (6)
  - DEPRESSED LEVEL OF CONSCIOUSNESS [None]
  - OVERDOSE [None]
  - PYREXIA [None]
  - RESPIRATORY RATE DECREASED [None]
  - SOMNOLENCE [None]
  - WRONG TECHNIQUE IN DRUG USAGE PROCESS [None]
